FAERS Safety Report 4271981-4 (Version None)
Quarter: 2004Q1

REPORT INFORMATION
  Report Type: 
  Country: None (occurrence: None)
  Receive Date: 20040115
  Receipt Date: 20040106
  Transmission Date: 20041129
  Serious: Yes (Other)
  Sender: FDA-Public Use
  Company Number: FR-BRISTOL-MYERS SQUIBB COMPANY-12472304

PATIENT
  Age: 50 Year
  Sex: Female

DRUGS (2)
  1. VIDEX [Suspect]
     Indication: HIV INFECTION
     Route: 048
  2. VIREAD [Suspect]
     Indication: HIV INFECTION

REACTIONS (1)
  - APHTHOUS STOMATITIS [None]
